FAERS Safety Report 12136279 (Version 3)
Quarter: 2016Q1

REPORT INFORMATION
  Report Type: Report from Study
  Country: US (occurrence: US)
  Receive Date: 20160302
  Receipt Date: 20160329
  Transmission Date: 20160526
  Serious: Yes (Hospitalization, Other)
  Sender: FDA-Public Use
  Company Number: US-SUN PHARMACEUTICAL INDUSTRIES LTD-2015US-103000

PATIENT
  Age: 13 Year
  Sex: Female
  Weight: 53.4 kg

DRUGS (2)
  1. ORTHO TRI CYCLEN [Concomitant]
     Active Substance: ETHINYL ESTRADIOL\NORGESTIMATE
     Indication: CONTRACEPTION
     Dosage: 28 MG, QD
     Route: 048
     Dates: start: 20160125
  2. ABSORICA [Suspect]
     Active Substance: ISOTRETINOIN
     Indication: ACNE
     Dosage: UNK, BID
     Route: 048
     Dates: start: 20150720

REACTIONS (6)
  - Back pain [Recovered/Resolved]
  - Appendicitis [Recovered/Resolved]
  - Ovarian cyst [Recovered/Resolved]
  - Abdominal pain [Recovered/Resolved]
  - Arthralgia [Recovered/Resolved]
  - Gait disturbance [Recovered/Resolved]

NARRATIVE: CASE EVENT DATE: 20150729
